FAERS Safety Report 19410854 (Version 1)
Quarter: 2021Q2

REPORT INFORMATION
  Report Type: Spontaneous
  Country: US (occurrence: US)
  Receive Date: 20210614
  Receipt Date: 20210614
  Transmission Date: 20210717
  Serious: Yes (Hospitalization, Other)
  Sender: FDA-Public Use
  Company Number: None

PATIENT
  Age: 43 Year
  Sex: Female
  Weight: 76.5 kg

DRUGS (6)
  1. TYLENOL [Concomitant]
     Active Substance: ACETAMINOPHEN
  2. RIZATRIPTAN. [Concomitant]
     Active Substance: RIZATRIPTAN
  3. EMGALITY [Suspect]
     Active Substance: GALCANEZUMAB-GNLM
     Indication: DRUG THERAPY
     Route: 058
     Dates: start: 20210522, end: 20210522
  4. CLARITIN [Concomitant]
     Active Substance: LORATADINE
  5. FLEXERIL [Concomitant]
     Active Substance: CYCLOBENZAPRINE HYDROCHLORIDE
  6. ZOFRAN [Concomitant]
     Active Substance: ONDANSETRON HYDROCHLORIDE

REACTIONS (8)
  - Gait disturbance [None]
  - Neck pain [None]
  - Chest pain [None]
  - Pain in jaw [None]
  - Limb discomfort [None]
  - Paraesthesia [None]
  - Arthralgia [None]
  - Myocardial infarction [None]

NARRATIVE: CASE EVENT DATE: 20210526
